FAERS Safety Report 6278364-6 (Version None)
Quarter: 2009Q3

REPORT INFORMATION
  Report Type: 
  Country: None (occurrence: None)
  Receive Date: 20090720
  Receipt Date: 20090720
  Transmission Date: 20100115
  Serious: Yes (Hospitalization, Other)
  Sender: FDA-Public Use
  Company Number: None

PATIENT
  Age: 53 Year
  Sex: Female
  Weight: 113.3993 kg

DRUGS (6)
  1. SYMBICORT [Suspect]
     Indication: ASTHMA
     Dosage: 2 PUFFS TWICE A DAY PO
     Route: 048
     Dates: start: 20090714, end: 20090717
  2. DIOVAN HCT [Concomitant]
  3. METFORMIN HCL [Concomitant]
  4. ALBUTEROL [Concomitant]
  5. FLOVENT [Concomitant]
  6. ASPIRIN [Concomitant]

REACTIONS (8)
  - COUGH [None]
  - DIZZINESS [None]
  - HYPERTENSIVE CRISIS [None]
  - INSOMNIA [None]
  - NAUSEA [None]
  - RHINORRHOEA [None]
  - VISION BLURRED [None]
  - VISUAL IMPAIRMENT [None]
